FAERS Safety Report 20706439 (Version 1)
Quarter: 2022Q2

REPORT INFORMATION
  Report Type: Spontaneous
  Country: US (occurrence: None)
  Receive Date: 20220413
  Receipt Date: 20220413
  Transmission Date: 20220721
  Serious: No
  Sender: FDA-Public Use
  Company Number: 2022A138440

PATIENT
  Sex: Male
  Weight: 99.8 kg

DRUGS (1)
  1. BUDESONIDE\FORMOTEROL\GLYCOPYRRONIUM [Suspect]
     Active Substance: BUDESONIDE\FORMOTEROL\GLYCOPYRRONIUM
     Indication: Idiopathic pulmonary fibrosis
     Dosage: BREZTRI INHALER 160 MCG/9MCG/4.8MCG, 120 INHALATIONS, 2 INHALATIONS TWICE A DAY FOR IDIOPATHIC PU...
     Route: 055

REACTIONS (6)
  - Dyspnoea [Unknown]
  - Cough [Unknown]
  - Oxygen saturation decreased [Unknown]
  - Device use issue [Unknown]
  - Device malfunction [Unknown]
  - Off label use [Unknown]
